FAERS Safety Report 17878572 (Version 11)
Quarter: 2022Q3

REPORT INFORMATION
  Report Type: Report from Study
  Country: JP (occurrence: JP)
  Receive Date: 20200610
  Receipt Date: 20220822
  Transmission Date: 20221026
  Serious: Yes (Death, Life-Threatening, Hospitalization, Other)
  Sender: FDA-Public Use
  Company Number: JP-ONO-2020JP013234

PATIENT
  Age: 71 Year
  Sex: Female
  Weight: 77.5 kg

DRUGS (12)
  1. ETELCALCETIDE [Suspect]
     Active Substance: ETELCALCETIDE
     Indication: Hyperparathyroidism secondary
     Dosage: 5 MILLIGRAM, Q56H
     Route: 065
     Dates: start: 20190520, end: 20210625
  2. ETELCALCETIDE [Suspect]
     Active Substance: ETELCALCETIDE
     Dosage: 5 MILLIGRAM, Q56H
     Route: 065
     Dates: start: 20210709
  3. CINACALCET HYDROCHLORIDE [Concomitant]
     Active Substance: CINACALCET HYDROCHLORIDE
     Dosage: 50 MILLIGRAM, QD
     Route: 048
     Dates: start: 20191017, end: 20200402
  4. OXAROL [Concomitant]
     Active Substance: MAXACALCITOL
     Dosage: 5 UG, Q56H
     Route: 065
     Dates: end: 20181112
  5. OXAROL [Concomitant]
     Active Substance: MAXACALCITOL
     Dosage: 5 UG, Q84H
     Route: 065
     Dates: start: 20181114, end: 20190719
  6. OXAROL [Concomitant]
     Active Substance: MAXACALCITOL
     Dosage: 5 UG, QW
     Route: 065
     Dates: start: 20190722, end: 20201118
  7. OXAROL [Concomitant]
     Active Substance: MAXACALCITOL
     Dosage: 5 UG, Q84H
     Route: 065
     Dates: start: 20201120
  8. FOSRENOL [Concomitant]
     Active Substance: LANTHANUM CARBONATE
     Dosage: 2250 MG, EVERYDAY
     Route: 048
  9. CALCIUM CARBONATE [Concomitant]
     Active Substance: CALCIUM CARBONATE
     Dosage: 1500 MG, EVERYDAY
     Route: 048
  10. CALCIUM POLYSTYRENE SULFONATE [Concomitant]
     Active Substance: CALCIUM POLYSTYRENE SULFONATE
     Dosage: 48.6 G, EVERYDAY
     Route: 048
  11. ERYTHROPOIETIN [Concomitant]
     Active Substance: ERYTHROPOIETIN
     Dosage: 9000 IU, QW
     Route: 058
  12. EVOCALCET [Concomitant]
     Active Substance: EVOCALCET
     Dosage: 2 MG, EVERYDAY
     Route: 048
     Dates: start: 20200403

REACTIONS (9)
  - Sepsis [Fatal]
  - Hyperkalaemia [Recovered/Resolved]
  - Arrhythmia [Recovering/Resolving]
  - Angina unstable [Recovered/Resolved]
  - Peripheral arterial occlusive disease [Recovered/Resolved]
  - Enterocolitis haemorrhagic [Recovered/Resolved]
  - Shunt stenosis [Recovered/Resolved]
  - Incisional hernia [Recovering/Resolving]
  - Enterocolitis [Recovering/Resolving]

NARRATIVE: CASE EVENT DATE: 20190703
